FAERS Safety Report 9714778 (Version 2)
Quarter: 2013Q4

REPORT INFORMATION
  Report Type: Spontaneous
  Country: IT (occurrence: IT)
  Receive Date: 20131126
  Receipt Date: 20131126
  Transmission Date: 20140711
  Serious: Yes (Hospitalization)
  Sender: FDA-Public Use
  Company Number: IT-ABBVIE-11P-083-0836611-00

PATIENT
  Age: 62 Year
  Sex: Female

DRUGS (3)
  1. VALPROATE SODIUM [Suspect]
     Indication: BIPOLAR I DISORDER
  2. DISULFIRAM [Suspect]
     Indication: ALCOHOLISM
     Dosage: DAILY
  3. 4-AMINO-3-HYDROXYBUTYRIC ACID [Interacting]
     Indication: ALCOHOLISM
     Dosage: DAILY

REACTIONS (15)
  - Drug resistance [Recovered/Resolved]
  - Epilepsy [Recovered/Resolved]
  - Drug interaction [Recovered/Resolved]
  - Hypomania [Recovered/Resolved]
  - Cognitive disorder [Unknown]
  - Confusional state [Recovered/Resolved]
  - Attention deficit/hyperactivity disorder [Unknown]
  - Illogical thinking [Unknown]
  - Confabulation [Recovered/Resolved]
  - Dysphoria [Unknown]
  - Memory impairment [Unknown]
  - Psychotic disorder [Recovered/Resolved]
  - Psychotic behaviour [Recovered/Resolved]
  - Delusion [Recovered/Resolved]
  - Neurotoxicity [Unknown]
